FAERS Safety Report 4883196-7 (Version None)
Quarter: 2006Q1

REPORT INFORMATION
  Report Type: 
  Country: None (occurrence: None)
  Receive Date: 20060118
  Receipt Date: 20060103
  Transmission Date: 20060701
  Serious: Yes (Hospitalization)
  Sender: FDA-Public Use
  Company Number: 2006GB00002

PATIENT
  Age: 39 Year
  Sex: Male

DRUGS (8)
  1. ATENOLOL [Suspect]
     Indication: HYPERTENSION
     Route: 048
  2. ZAPONEX [Suspect]
     Dosage: 300 + 400 MG DAILY
     Route: 048
     Dates: start: 20050623, end: 20051109
  3. BENDROFLUAZIDE [Suspect]
     Indication: HYPERTENSION
     Route: 048
  4. CLOZAPINE [Suspect]
     Dates: start: 20030221, end: 20050622
  5. ASPIRIN [Concomitant]
     Indication: HYPERTENSION
     Route: 065
  6. SIMVASTATIN [Concomitant]
     Indication: HYPERCHOLESTEROLAEMIA
     Route: 065
  7. HYOSCINE HBR HYT [Concomitant]
     Indication: SALIVARY HYPERSECRETION
     Route: 065
  8. AMISULPRIDE [Concomitant]
     Dosage: 200 - 400 MG DAILY
     Route: 065

REACTIONS (1)
  - DIABETES MELLITUS INSULIN-DEPENDENT [None]
